FAERS Safety Report 9474056 (Version 3)
Quarter: 2014Q3

REPORT INFORMATION
  Report Type: Spontaneous
  Country: US (occurrence: None)
  Receive Date: 20130820
  Receipt Date: 20140813
  Transmission Date: 20150326
  Serious: Yes (Other)
  Sender: FDA-Public Use
  Company Number: 2013US002254

PATIENT
  Age: 75 Year
  Sex: Male

DRUGS (1)
  1. ICLUSIG [Suspect]
     Active Substance: PONATINIB
     Indication: CHRONIC MYELOID LEUKAEMIA
     Route: 048
     Dates: start: 20130608, end: 20130731

REACTIONS (4)
  - Tachycardia [None]
  - Echocardiogram abnormal [None]
  - Cardiac disorder [None]
  - Hypertension [None]
